FAERS Safety Report 4957382-1 (Version None)
Quarter: 2006Q1

REPORT INFORMATION
  Report Type: 
  Country: None (occurrence: None)
  Receive Date: 20060327
  Receipt Date: 20060314
  Transmission Date: 20060701
  Serious: Yes (Death)
  Sender: FDA-Public Use
  Company Number: 06H-163-0306612-00

PATIENT
  Age: 77 Year
  Sex: Female
  Weight: 51.2565 kg

DRUGS (1)
  1. HYDROMORPHONE HCL [Suspect]
     Dosage: 2 MG, NOT REPORTED, INTRAVENOUS
     Route: 042
     Dates: start: 20030101, end: 20030101

REACTIONS (4)
  - BRAIN DEATH [None]
  - HYPOXIC ENCEPHALOPATHY [None]
  - RESPIRATORY ARREST [None]
  - RESUSCITATION [None]
